FAERS Safety Report 15584573 (Version 1)
Quarter: 2018Q4

REPORT INFORMATION
  Report Type: Report from Study
  Country: GB (occurrence: GB)
  Receive Date: 20181105
  Receipt Date: 20181105
  Transmission Date: 20190205
  Serious: Yes (Other)
  Sender: FDA-Public Use
  Company Number: GB-ROCHE-2206373

PATIENT

DRUGS (5)
  1. LEVOFOLINIC ACID [Suspect]
     Active Substance: LEVOLEUCOVORIN
     Indication: RECTAL CANCER
     Dosage: ON DAY 1 OVER 2 HOURS, EVERY 14 DAYS ONE CYCLE
     Route: 041
  2. OXALIPLATIN. [Suspect]
     Active Substance: OXALIPLATIN
     Indication: RECTAL CANCER
     Dosage: DAY 1?EVERY 14 DAYS ONE CYCLE
     Route: 041
  3. CAPECITABINE. [Suspect]
     Active Substance: CAPECITABINE
     Indication: RECTAL CANCER
     Dosage: FOR 9 DAYS?EVERY 14 DAYS ONE CYCLE
     Route: 048
  4. FLUOROURACIL. [Suspect]
     Active Substance: FLUOROURACIL
     Dosage: OVER 46 HOURS, EVERY 14 DAYS ONE CYCLE
     Route: 041
  5. FLUOROURACIL. [Suspect]
     Active Substance: FLUOROURACIL
     Indication: RECTAL CANCER
     Dosage: EVERY 14 DAYS ONE CYCLE
     Route: 040

REACTIONS (12)
  - Upper respiratory tract infection [Unknown]
  - Abdominal pain [Unknown]
  - Neutrophil count decreased [Unknown]
  - Rectal obstruction [Unknown]
  - Platelet count decreased [Unknown]
  - Palmar-plantar erythrodysaesthesia syndrome [Unknown]
  - Injection site reaction [Unknown]
  - Diarrhoea [Unknown]
  - Nausea [Unknown]
  - Weight decreased [Unknown]
  - White blood cell count decreased [Unknown]
  - Hyperuricaemia [Unknown]
